FAERS Safety Report 7481907-8 (Version None)
Quarter: 2011Q2

REPORT INFORMATION
  Report Type: 
  Country: None (occurrence: None)
  Receive Date: 20110509
  Receipt Date: 20110502
  Transmission Date: 20111010
  Serious: Yes (Death, Other)
  Sender: FDA-Public Use
  Company Number: 2010AC000209

PATIENT
  Age: 77 Year
  Sex: Female

DRUGS (4)
  1. WARFARIN SODIUM [Concomitant]
  2. DIGOXIN [Suspect]
     Dosage: 0.125 MG;QD;PO
     Route: 048
     Dates: start: 20080306, end: 20080323
  3. METOPROLOL TARTRATE [Concomitant]
  4. CARDIZEM CD [Concomitant]

REACTIONS (8)
  - SUDDEN DEATH [None]
  - POOR QUALITY DRUG ADMINISTERED [None]
  - ARRHYTHMIA [None]
  - MULTIPLE INJURIES [None]
  - ECONOMIC PROBLEM [None]
  - UNRESPONSIVE TO STIMULI [None]
  - TOXICITY TO VARIOUS AGENTS [None]
  - UNEVALUABLE EVENT [None]
